FAERS Safety Report 4916984-9 (Version None)
Quarter: 2006Q1

REPORT INFORMATION
  Report Type: 
  Country: None (occurrence: None)
  Receive Date: 20060221
  Receipt Date: 20060214
  Transmission Date: 20060701
  Serious: Yes (Hospitalization)
  Sender: FDA-Public Use
  Company Number: PHBS2006CH02498

PATIENT
  Age: 60 Year
  Sex: Female

DRUGS (6)
  1. CLOZAPINE [Suspect]
     Indication: SCHIZOAFFECTIVE DISORDER
     Dosage: 75 MG/DAY
     Dates: start: 20030201
  2. CLOZAPINE [Suspect]
     Dosage: 125 MG/DAY
     Dates: start: 20030301
  3. CLOZAPINE [Suspect]
     Dosage: 400 MG/DAY
     Dates: start: 20030101, end: 20030721
  4. SEROQUEL [Suspect]
     Indication: SCHIZOAFFECTIVE DISORDER
     Dosage: 200 MG/DAY
     Dates: start: 20030101, end: 20030317
  5. HALDOL [Suspect]
     Indication: SCHIZOAFFECTIVE DISORDER
     Dosage: 10 MG/DAY
     Dates: start: 20030101
  6. QUILONORM /SCH/ [Suspect]
     Indication: SCHIZOAFFECTIVE DISORDER
     Dosage: 1-2 TABLETS/DAY
     Route: 048

REACTIONS (2)
  - ENCEPHALOPATHY [None]
  - NEUROLEPTIC MALIGNANT SYNDROME [None]
